FAERS Safety Report 12310016 (Version 1)
Quarter: 2016Q2

REPORT INFORMATION
  Report Type: Spontaneous
  Country: NO (occurrence: NO)
  Receive Date: 20160427
  Receipt Date: 20160427
  Transmission Date: 20160815
  Serious: Yes (Death)
  Sender: FDA-Public Use
  Company Number: NO-GLAXOSMITHKLINE-NO2016057595

PATIENT
  Age: 47 Year
  Sex: Female

DRUGS (8)
  1. CODEINE PHOSPHATE [Suspect]
     Active Substance: CODEINE PHOSPHATE
  2. PARACETAMOL [Suspect]
     Active Substance: ACETAMINOPHEN
  3. OXAZEPAM. [Suspect]
     Active Substance: OXAZEPAM
  4. VENLAFAXINE [Suspect]
     Active Substance: VENLAFAXINE HYDROCHLORIDE
  5. DIAZEPAM. [Suspect]
     Active Substance: DIAZEPAM
  6. LAMOTRIGINE. [Suspect]
     Active Substance: LAMOTRIGINE
  7. METOCLOPRAMIDE. [Suspect]
     Active Substance: METOCLOPRAMIDE
  8. THEOPHYLLINE [Suspect]
     Active Substance: THEOPHYLLINE ANHYDROUS

REACTIONS (1)
  - Toxicity to various agents [Fatal]
